FAERS Safety Report 15233252 (Version 2)
Quarter: 2019Q1

REPORT INFORMATION
  Report Type: Spontaneous
  Country: US (occurrence: US)
  Receive Date: 20180802
  Receipt Date: 20190226
  Transmission Date: 20190417
  Serious: Yes (Other)
  Sender: FDA-Public Use
  Company Number: US-PFIZER INC-2018306580

PATIENT
  Age: 21 Year
  Sex: Female

DRUGS (18)
  1. CIMETIDINE [Concomitant]
     Active Substance: CIMETIDINE
     Indication: GASTRIC DISORDER
     Dosage: 300 MG, 2X/DAY (DAY 8 AT 300 MG IV Q 12 HOURS)
     Route: 042
  2. METRONIDAZOLE. [Concomitant]
     Active Substance: METRONIDAZOLE
     Indication: FEBRILE NEUTROPENIA
     Dosage: UNK
  3. MORPHINE [Concomitant]
     Active Substance: MORPHINE
     Indication: PAIN
     Dosage: UNK, AS NEEDED
  4. PHENOBARBITAL. [Concomitant]
     Active Substance: PHENOBARBITAL
     Indication: TOXICITY TO VARIOUS AGENTS
     Dosage: UNK (ON DAY 7)
  5. GRANULOCYTE MACROPHAGE COLONY STIM FACTOR [Concomitant]
     Active Substance: GRANULOCYTE-MACROPHAGE COLONY-STIMULATING FACTOR
     Dosage: 300 UG, 2X/DAY (OVER 4 TO 6 HOURS)
     Route: 042
  6. GRANULOCYTE MACROPHAGE COLONY STIM FACTOR [Concomitant]
     Active Substance: GRANULOCYTE-MACROPHAGE COLONY-STIMULATING FACTOR
     Dosage: 300 UG, 2X/DAY (OVER 30 MINUTES)
     Route: 042
  7. CEFTAZIDIME. [Concomitant]
     Active Substance: CEFTAZIDIME
     Indication: FEBRILE NEUTROPENIA
     Dosage: UNK
  8. AZTREONAM. [Concomitant]
     Active Substance: AZTREONAM
     Indication: FEBRILE NEUTROPENIA
     Dosage: UNK
  9. NYSTATIN. [Concomitant]
     Active Substance: NYSTATIN
     Dosage: UNK
  10. ACYCLOVIR. [Concomitant]
     Active Substance: ACYCLOVIR
     Indication: FEBRILE NEUTROPENIA
     Dosage: UNK
  11. ACYCLOVIR. [Concomitant]
     Active Substance: ACYCLOVIR
     Indication: PROPHYLAXIS
  12. MESNA. [Concomitant]
     Active Substance: MESNA
     Dosage: UNK (30 G/M^2) (GIVEN BY CIVI OVER 5 D)
     Route: 042
  13. DACARBAZINE. [Concomitant]
     Active Substance: DACARBAZINE
     Indication: OSTEOSARCOMA
     Dosage: 575 MG/M2, (GIVEN BY CIVI OVER 5 D)
     Route: 042
  14. PHENOBARBITAL. [Concomitant]
     Active Substance: PHENOBARBITAL
     Indication: DRUG CLEARANCE
     Dosage: 200 MG, 3X/DAY (Q 8 HOURS FROM DAY 7 TO DAY 11)
     Route: 042
  15. IFOSFAMIDE. [Concomitant]
     Active Substance: IFOSFAMIDE
     Indication: OSTEOSARCOMA
     Dosage: UNK (24 G/M^2 GIVEN BY CIVI OVER 4 D) (VERY HIGH DOSE)
     Route: 042
  16. IFOSFAMIDE. [Concomitant]
     Active Substance: IFOSFAMIDE
     Dosage: UNK, CYCLIC CYCLIC (1.5 G/M^2/DX5 D))
  17. VANCOMYCIN [Concomitant]
     Active Substance: VANCOMYCIN
     Indication: FEBRILE NEUTROPENIA
     Dosage: UNK
  18. DOXORUBICIN HCL [Suspect]
     Active Substance: DOXORUBICIN HYDROCHLORIDE
     Indication: OSTEOSARCOMA
     Dosage: 300 MG/M2, UNK  (GIVEN BY CIVI OVER 5 D) (VERY HIGH DOSE)
     Route: 042

REACTIONS (1)
  - Cardiotoxicity [Unknown]
